FAERS Safety Report 5130358-X (Version None)
Quarter: 2006Q4

REPORT INFORMATION
  Report Type: 
  Country: None (occurrence: None)
  Receive Date: 20061018
  Receipt Date: 20061018
  Transmission Date: 20070319
  Serious: Yes (Disabling)
  Sender: FDA-Public Use
  Company Number: None

PATIENT
  Age: 76 Year
  Sex: Female
  Weight: 66.6 kg

DRUGS (2)
  1. PACLITAXEL [Suspect]
     Indication: BREAST CANCER METASTATIC
     Dosage: 170MG Q2W IV
     Route: 042
     Dates: start: 20060720, end: 20061012
  2. AVASTIN [Suspect]
     Indication: BREAST CANCER METASTATIC
     Dosage: 10MG/KG Q3W IV
     Route: 042
     Dates: start: 20060720, end: 20060830

REACTIONS (4)
  - DYSURIA [None]
  - HAEMATURIA [None]
  - MICTURITION URGENCY [None]
  - POLLAKIURIA [None]
